FAERS Safety Report 6686162-4 (Version None)
Quarter: 2010Q2

REPORT INFORMATION
  Report Type: 
  Country: None (occurrence: None)
  Receive Date: 20100419
  Receipt Date: 20100408
  Transmission Date: 20101027
  Serious: Yes (Hospitalization)
  Sender: FDA-Public Use
  Company Number: PHHY2010DE21963

PATIENT
  Sex: Male
  Weight: 76 kg

DRUGS (2)
  1. EXFORGE [Suspect]
     Indication: HYPERTENSION
     Dosage: 80/5 MG PER DAY
     Route: 048
     Dates: start: 20091120, end: 20091219
  2. EXFORGE [Suspect]
     Dosage: 160/5 MG PER DAY
     Route: 048
     Dates: start: 20091220

REACTIONS (1)
  - ROAD TRAFFIC ACCIDENT [None]
